FAERS Safety Report 23222204 (Version 4)
Quarter: 2024Q2

REPORT INFORMATION
  Report Type: Spontaneous
  Country: CO (occurrence: CO)
  Receive Date: 20231123
  Receipt Date: 20240416
  Transmission Date: 20240716
  Serious: Yes (Hospitalization, Other)
  Sender: FDA-Public Use
  Company Number: CO-BIOVITRUM-2023-CO-018375

PATIENT

DRUGS (2)
  1. PEGCETACOPLAN [Suspect]
     Active Substance: PEGCETACOPLAN
     Indication: Paroxysmal nocturnal haemoglobinuria
     Dosage: TWICE A WEEK (TUESDAY AND THURSDAY)
     Route: 058
     Dates: start: 20230815, end: 20240322
  2. ECULIZUMAB [Concomitant]
     Active Substance: ECULIZUMAB
     Indication: Product used for unknown indication
     Dosage: EVERY 15 DAYS
     Route: 042
     Dates: start: 20000301, end: 20230907

REACTIONS (3)
  - Immune system disorder [Recovered/Resolved]
  - Haemolysis [Recovered/Resolved]
  - Intentional dose omission [Recovered/Resolved]

NARRATIVE: CASE EVENT DATE: 20231114
